FAERS Safety Report 8252839-2 (Version None)
Quarter: 2012Q2

REPORT INFORMATION
  Report Type: 
  Country: None (occurrence: None)
  Receive Date: 20120402
  Receipt Date: 20111227
  Transmission Date: 20120825
  Serious: No
  Sender: FDA-Public Use
  Company Number: US-ABBOTT-11P-163-0887253-00

PATIENT
  Sex: Male
  Weight: 111.23 kg

DRUGS (2)
  1. MULTIVITAMIN (HIGH POTENCY) [Concomitant]
     Indication: VITAMIN SUPPLEMENTATION
     Route: 048
  2. ANDROGEL [Suspect]
     Indication: BLOOD TESTOSTERONE DECREASED
     Dosage: PACKETS, ONCE DAILY
     Route: 061
     Dates: start: 20111110

REACTIONS (2)
  - APPLICATION SITE PAIN [None]
  - DRY SKIN [None]
